FAERS Safety Report 5767379-X (Version None)
Quarter: 2008Q2

REPORT INFORMATION
  Report Type: 
  Country: None (occurrence: None)
  Receive Date: 20080612
  Receipt Date: 20080602
  Transmission Date: 20081010
  Serious: Yes (Hospitalization)
  Sender: FDA-Public Use
  Company Number: B0519977A

PATIENT
  Age: 36 Year
  Sex: Male

DRUGS (3)
  1. ARIXTRA [Suspect]
     Indication: PULMONARY EMBOLISM
     Dosage: 7.5MG PER DAY
     Route: 058
     Dates: start: 20080424, end: 20080509
  2. PREVISCAN [Suspect]
     Indication: PULMONARY EMBOLISM
     Route: 048
     Dates: start: 20080427, end: 20080508
  3. METHADONE HCL [Concomitant]
     Dosage: 100MG PER DAY
     Route: 065

REACTIONS (5)
  - HAEMOGLOBIN DECREASED [None]
  - MUSCLE HAEMORRHAGE [None]
  - MUSCULAR WEAKNESS [None]
  - PAIN IN EXTREMITY [None]
  - THROMBOSIS [None]
